FAERS Safety Report 17159709 (Version 2)
Quarter: 2020Q1

REPORT INFORMATION
  Report Type: Spontaneous
  Country: ES (occurrence: ES)
  Receive Date: 20191216
  Receipt Date: 20200110
  Transmission Date: 20200409
  Serious: Yes (Hospitalization)
  Sender: FDA-Public Use
  Company Number: ES-PFIZER INC-2019540520

PATIENT
  Age: 82 Year
  Sex: Female

DRUGS (2)
  1. HYDREA [Concomitant]
     Active Substance: HYDROXYUREA
     Indication: PLATELET COUNT INCREASED
     Dosage: UNK
  2. DOBUPAL RETARD [Suspect]
     Active Substance: VENLAFAXINE HYDROCHLORIDE
     Indication: DEPRESSION
     Dosage: UNK
     Dates: start: 201909

REACTIONS (4)
  - Hiatus hernia [Unknown]
  - Gastrointestinal haemorrhage [Unknown]
  - Dizziness [Recovering/Resolving]
  - Ulcer [Unknown]

NARRATIVE: CASE EVENT DATE: 20191130
